FAERS Safety Report 8408197-3 (Version None)
Quarter: 2012Q2

REPORT INFORMATION
  Report Type: 
  Country: None (occurrence: None)
  Receive Date: 20120531
  Receipt Date: 20120531
  Transmission Date: 20120825
  Serious: Yes (Other)
  Sender: FDA-Public Use
  Company Number: None

PATIENT
  Age: 44 Year
  Sex: Female
  Weight: 102.5129 kg

DRUGS (3)
  1. MEPERIDINE HCL [Suspect]
     Indication: CYSTITIS INTERSTITIAL
     Dosage: 100 MG. TID PO
     Route: 048
     Dates: start: 20120523, end: 20120530
  2. MEPERIDINE HCL [Suspect]
     Indication: ADENOMYOSIS
     Dosage: 100 MG. TID PO
     Route: 048
     Dates: start: 20120523, end: 20120530
  3. MEPERIDINE HCL [Suspect]
     Indication: ENDOMETRIOSIS
     Dosage: 100 MG. TID PO
     Route: 048
     Dates: start: 20120523, end: 20120530

REACTIONS (2)
  - URTICARIA [None]
  - PRURITUS GENERALISED [None]
